FAERS Safety Report 11637886 (Version 1)
Quarter: 2015Q4

REPORT INFORMATION
  Report Type: Spontaneous
  Country: US (occurrence: US)
  Receive Date: 20151016
  Receipt Date: 20151016
  Transmission Date: 20160304
  Serious: No
  Sender: FDA-Public Use
  Company Number: US-AMNEAL PHARMACEUTICALS-2015AMN00126

PATIENT
  Age: 53 Year
  Sex: Female
  Weight: 113.38 kg

DRUGS (4)
  1. UNSPECIFIED THYROID MEDICATIONS [Concomitant]
  2. UNSPECIFIED HEART MEDICATIONS [Concomitant]
  3. HYDROCODONE AND ACETAMINOPHEN [Suspect]
     Active Substance: ACETAMINOPHEN\HYDROCODONE
     Indication: BACK PAIN
     Dosage: 1 TABLETS, EVERY 6 HOURS
     Route: 048
     Dates: start: 20141107
  4. UNSPECIFIED WATER PILL [Concomitant]

REACTIONS (1)
  - Drug ineffective [Not Recovered/Not Resolved]

NARRATIVE: CASE EVENT DATE: 20141107
